FAERS Safety Report 5994165-8 (Version None)
Quarter: 2008Q4

REPORT INFORMATION
  Report Type: 
  Country: None (occurrence: None)
  Receive Date: 20081212
  Receipt Date: 20080903
  Transmission Date: 20090506
  Serious: No
  Sender: FDA-Public Use
  Company Number: US-ABBOTT-08P-163-0473751-00

PATIENT
  Sex: Female
  Weight: 59.928 kg

DRUGS (3)
  1. HUMIRA [Suspect]
     Indication: CROHN'S DISEASE
     Route: 058
     Dates: start: 20080101
  2. PRINZIDE [Concomitant]
     Indication: HYPERTENSION
     Route: 048
  3. GLIPIZIDE [Concomitant]
     Indication: GLUCOSE TOLERANCE IMPAIRED
     Route: 048

REACTIONS (1)
  - OVERDOSE [None]
